FAERS Safety Report 5104780-1 (Version None)
Quarter: 2006Q3

REPORT INFORMATION
  Report Type: 
  Country: None (occurrence: None)
  Receive Date: 20060914
  Receipt Date: 20060905
  Transmission Date: 20061208
  Serious: Yes (Death)
  Sender: FDA-Public Use
  Company Number: US-JNJFOC-20060902268

PATIENT
  Age: 45 Year
  Sex: Female

DRUGS (6)
  1. CYCLOBENZAPRINE 10 MG [Suspect]
     Indication: SUICIDE ATTEMPT
     Route: 048
  2. OXYCODONE HCL [Suspect]
     Indication: SUICIDE ATTEMPT
     Route: 048
  3. CLONAZEPAM [Suspect]
     Indication: SUICIDE ATTEMPT
     Route: 048
  4. ALPRAZOLAM [Suspect]
     Indication: SUICIDE ATTEMPT
     Route: 048
  5. ETHANOL [Suspect]
     Indication: SUICIDE ATTEMPT
     Route: 048
  6. AMOXICILLIN [Suspect]
     Indication: SUICIDE ATTEMPT
     Route: 048

REACTIONS (5)
  - COMPLETED SUICIDE [None]
  - DRUG TOXICITY [None]
  - OVERDOSE [None]
  - PULMONARY CONGESTION [None]
  - PULMONARY OEDEMA [None]
